FAERS Safety Report 5900370-9 (Version None)
Quarter: 2008Q3

REPORT INFORMATION
  Report Type: 
  Country: None (occurrence: None)
  Receive Date: 20080926
  Receipt Date: 20080918
  Transmission Date: 20090109
  Serious: Yes (Other)
  Sender: FDA-Public Use
  Company Number: US-BAYER-200813815BCC

PATIENT
  Age: 89 Year
  Sex: Female
  Weight: 73 kg

DRUGS (3)
  1. ASPIRIN [Suspect]
     Indication: ANALGESIA
     Dosage: TOTAL DAILY DOSE: 650 MG  UNIT DOSE: 325 MG
     Route: 048
     Dates: start: 20020101, end: 20020101
  2. TYLENOL (CAPLET) [Concomitant]
     Route: 048
  3. CENTRUM [Concomitant]

REACTIONS (1)
  - RECTAL HAEMORRHAGE [None]
